FAERS Safety Report 5955537-0 (Version None)
Quarter: 2008Q4

REPORT INFORMATION
  Report Type: 
  Country: None (occurrence: None)
  Receive Date: 20081113
  Receipt Date: 20081031
  Transmission Date: 20090506
  Serious: Yes (Hospitalization)
  Sender: FDA-Public Use
  Company Number: TPH-00117

PATIENT
  Age: 30 Year
  Sex: Female

DRUGS (5)
  1. TRIQUILAR      LOT NUMBER: BS0037 [Suspect]
     Indication: CONTRACEPTION
     Route: 048
     Dates: start: 19980101, end: 20081014
  2. TEGRETOL [Concomitant]
  3. FLUOXETINE [Concomitant]
  4. ALPRAZOLAM [Concomitant]
  5. UKNOWN DRUG (UNCODEABLE ^UNCLASSIFIABLE^) [Concomitant]

REACTIONS (8)
  - ABDOMINAL PAIN UPPER [None]
  - ANAL NEOPLASM [None]
  - DRUG EXPOSURE DURING PREGNANCY [None]
  - DYSPNOEA [None]
  - HYPOMENORRHOEA [None]
  - INAPPROPRIATE SCHEDULE OF DRUG ADMINISTRATION [None]
  - NAUSEA [None]
  - PREGNANCY ON ORAL CONTRACEPTIVE [None]
